FAERS Safety Report 24834120 (Version 1)
Quarter: 2025Q1

REPORT INFORMATION
  Report Type: Spontaneous
  Country: CN (occurrence: CN)
  Receive Date: 20250113
  Receipt Date: 20250113
  Transmission Date: 20250408
  Serious: Yes (Life-Threatening, Other)
  Sender: BEIGENE
  Company Number: CN-BEIGENE-BGN-2025-000562

PATIENT

DRUGS (2)
  1. TISLELIZUMAB [Suspect]
     Active Substance: TISLELIZUMAB
     Indication: Squamous cell carcinoma of lung
     Route: 041
     Dates: start: 20241123
  2. PACLITAXEL [Suspect]
     Active Substance: PACLITAXEL
     Indication: Squamous cell carcinoma of lung
     Route: 041
     Dates: start: 20241123

REACTIONS (3)
  - Myelosuppression [Recovering/Resolving]
  - Pneumonia [Recovering/Resolving]
  - Sepsis [Recovering/Resolving]

NARRATIVE: CASE EVENT DATE: 20241129
